FAERS Safety Report 5418583-1 (Version None)
Quarter: 2007Q3

REPORT INFORMATION
  Report Type: 
  Country: None (occurrence: None)
  Receive Date: 20070817
  Receipt Date: 20070808
  Transmission Date: 20080115
  Serious: Yes (Other)
  Sender: FDA-Public Use
  Company Number: IE-PFIZER INC-2007066339

PATIENT
  Age: 59 Year
  Sex: Female

DRUGS (4)
  1. LIPITOR [Suspect]
     Indication: BLOOD CHOLESTEROL
     Dosage: TEXT:10 MG
     Route: 048
     Dates: start: 20060501, end: 20070705
  2. MULTIVITAMIN [Concomitant]
  3. ESTRADIOL [Concomitant]
  4. EVENING PRIMROSE OIL [Concomitant]

REACTIONS (3)
  - ANXIETY [None]
  - CHOKING [None]
  - DYSPHAGIA [None]
